FAERS Safety Report 9567897 (Version 2)
Quarter: 2013Q3

REPORT INFORMATION
  Report Type: Spontaneous
  Country: US (occurrence: US)
  Receive Date: 20130930
  Receipt Date: 20130930
  Transmission Date: 20140515
  Serious: No
  Sender: FDA-Public Use
  Company Number: US-AMGEN-USASP2012059672

PATIENT
  Age: 54 Year
  Sex: Female
  Weight: 78.46 kg

DRUGS (15)
  1. ENBREL [Suspect]
     Indication: PSORIATIC ARTHROPATHY
     Dosage: 25 MG, 2 TIMES/WK
     Route: 058
     Dates: start: 20100113, end: 20130210
  2. LUNESTA [Concomitant]
     Dosage: 3 MG, UNK
     Route: 048
  3. ADVIL                              /00109201/ [Concomitant]
     Dosage: UNK
  4. SYNTHROID [Concomitant]
     Dosage: 150 MUG, QD,DAILY
     Route: 048
  5. QVAR [Concomitant]
     Dosage: 80 MUG, UNK
  6. XOPENEX HFA [Concomitant]
     Dosage: UNK
  7. CLOBETASOL 0.05% [Concomitant]
     Dosage: UNK
  8. OMNARIS [Concomitant]
     Dosage: 2 DAILY
     Route: 048
  9. MIRAPEX [Concomitant]
     Dosage: 0.25 MG, UNK
  10. ZYRTEC ALLERGY [Concomitant]
     Dosage: 10 MG, QD,DAILY
     Route: 048
  11. MULTIVITAMIN                       /00097801/ [Concomitant]
     Dosage: UNK
  12. TOPICORT                           /00028604/ [Concomitant]
     Dosage: UNK
  13. PROZAC [Concomitant]
     Dosage: 10 MG, QD,DAILY
     Route: 048
  14. FISH OIL [Concomitant]
     Dosage: 500 MG, UNK
  15. CALCIUM D                          /00944201/ [Concomitant]
     Dosage: UNK

REACTIONS (8)
  - Weight increased [Not Recovered/Not Resolved]
  - Injection site mass [Not Recovered/Not Resolved]
  - Injection site reaction [Unknown]
  - Injection site erythema [Not Recovered/Not Resolved]
  - Injection site urticaria [Unknown]
  - Injection site warmth [Unknown]
  - Injection site pruritus [Unknown]
  - Bronchitis [Recovered/Resolved]
